FAERS Safety Report 6042716-X (Version None)
Quarter: 2009Q1

REPORT INFORMATION
  Report Type: 
  Country: None (occurrence: None)
  Receive Date: 20090119
  Receipt Date: 20080416
  Transmission Date: 20090719
  Serious: Yes (Other)
  Sender: FDA-Public Use
  Company Number: BR-BAYER-200813838LA

PATIENT
  Age: 23 Year
  Sex: Female
  Weight: 52 kg

DRUGS (3)
  1. YAZ [Suspect]
     Indication: POLYCYSTIC OVARIES
     Route: 048
  2. PHARMATON [Concomitant]
     Indication: DRUG USE FOR UNKNOWN INDICATION
     Route: 048
     Dates: start: 20080301
  3. VITAMIN E [Concomitant]
     Indication: BREAST CYST
     Route: 048

REACTIONS (1)
  - SOMNOLENCE [None]
